FAERS Safety Report 8504266-8 (Version None)
Quarter: 2012Q3

REPORT INFORMATION
  Report Type: 
  Country: None (occurrence: None)
  Receive Date: 20120711
  Receipt Date: 20120704
  Transmission Date: 20120928
  Serious: Yes (Other)
  Sender: FDA-Public Use
  Company Number: AU-UCBSA-059109

PATIENT
  Age: 59 Year
  Sex: Female

DRUGS (2)
  1. CSL FLUVAX [Suspect]
     Indication: IMMUNISATION
     Route: 058
     Dates: start: 20120530, end: 20120530
  2. CIMZIA [Suspect]
     Indication: RHEUMATOID ARTHRITIS
     Route: 058
     Dates: start: 20120517

REACTIONS (1)
  - RASH GENERALISED [None]
